FAERS Safety Report 6218220-2 (Version None)
Quarter: 2009Q2

REPORT INFORMATION
  Report Type: 
  Country: None (occurrence: None)
  Receive Date: 20090608
  Receipt Date: 20090528
  Transmission Date: 20091009
  Serious: Yes (Hospitalization)
  Sender: FDA-Public Use
  Company Number: FR-AVENTIS-200912055FR

PATIENT
  Age: 86 Year
  Sex: Male
  Weight: 73 kg

DRUGS (15)
  1. ARAVA [Suspect]
     Route: 048
     Dates: start: 20090306, end: 20090319
  2. ARAVA [Suspect]
     Route: 048
     Dates: start: 20090320
  3. DERMOVAL                           /00337102/ [Suspect]
     Dosage: FREQUENCY: IRREGULAR
     Route: 061
     Dates: start: 20090306
  4. COMTAN [Concomitant]
     Indication: PARKINSON'S DISEASE
     Route: 048
  5. IKOREL [Concomitant]
     Indication: ANGINA PECTORIS
     Route: 048
  6. KARDEGIC                           /00002703/ [Concomitant]
     Route: 048
  7. PERMIXON                           /00833501/ [Concomitant]
     Indication: DYSURIA
     Route: 048
  8. SINEMET [Concomitant]
     Indication: PARKINSON'S DISEASE
  9. EXELON                             /01383202/ [Concomitant]
  10. ARESTAL [Concomitant]
     Dates: start: 20090506
  11. STILNOX                            /00914901/ [Concomitant]
     Indication: INSOMNIA
  12. FORLAX [Concomitant]
     Indication: CONSTIPATION
  13. NEXIUM [Concomitant]
  14. MOTILIUM [Concomitant]
     Indication: NAUSEA
  15. DOLIPRANE [Concomitant]
     Indication: PAIN

REACTIONS (2)
  - CHEST PAIN [None]
  - TRANSAMINASES INCREASED [None]
